FAERS Safety Report 7201885-6 (Version None)
Quarter: 2010Q4

REPORT INFORMATION
  Report Type: 
  Country: None (occurrence: None)
  Receive Date: 20101229
  Receipt Date: 20101220
  Transmission Date: 20110411
  Serious: Yes (Hospitalization)
  Sender: FDA-Public Use
  Company Number: US-ASTRAZENECA-2010SE55221

PATIENT
  Age: 71 Year
  Sex: Female
  Weight: 91 kg

DRUGS (11)
  1. CRESTOR [Suspect]
     Indication: HYPERLIPIDAEMIA
     Route: 048
  2. ONGLYZA [Suspect]
     Indication: TYPE 2 DIABETES MELLITUS
     Route: 048
     Dates: start: 20100630, end: 20101113
  3. ATENOLOL [Concomitant]
     Route: 048
  4. OMEPRAZOLE [Concomitant]
     Route: 048
  5. LASIX [Concomitant]
     Indication: SWELLING
     Route: 048
  6. INSULIN [Concomitant]
     Route: 058
  7. NOVOLOG [Concomitant]
     Route: 058
  8. LANTUS [Concomitant]
     Dosage: 1 DF: 30 UNITS 100 UNITS/ML (3 ML), AT BEDTIME
     Route: 058
  9. ASPIRIN [Concomitant]
  10. SYNTHROID [Concomitant]
     Route: 048
  11. POTASSIUM CHLORIDE [Concomitant]
     Dosage: TABS SUS REL PARTICLE/ CRYSTAL 20 MEQ, 1 TABS EVERY MORNING
     Route: 048

REACTIONS (4)
  - HYPERGLYCAEMIA [None]
  - HYPOPHOSPHATAEMIA [None]
  - PANCREATITIS [None]
  - RHABDOMYOLYSIS [None]
